FAERS Safety Report 7744383-3 (Version None)
Quarter: 2011Q3

REPORT INFORMATION
  Report Type: 
  Country: None (occurrence: None)
  Receive Date: 20110912
  Receipt Date: 20110831
  Transmission Date: 20111222
  Serious: Yes (Hospitalization)
  Sender: FDA-Public Use
  Company Number: BR-MEDIMMUNE-MEDI-0013524

PATIENT
  Sex: Female
  Weight: 9 kg

DRUGS (8)
  1. HYDROCHLOROTHIAZIDE [Concomitant]
     Indication: HYPERTENSION
     Route: 048
     Dates: start: 20091216
  2. SODIUM CHLORIDE 0.9% [Concomitant]
  3. SYNAGIS [Suspect]
     Indication: CARDIAC DISORDER
     Route: 030
     Dates: start: 20110411, end: 20110411
  4. SPIRONOLACTONE [Concomitant]
     Indication: HYPERTENSION
     Route: 048
     Dates: start: 20091216
  5. ENALAPRIL MALEATE [Concomitant]
     Route: 048
     Dates: start: 20091216
  6. CLOROMEDROL [Concomitant]
     Route: 042
  7. FUROSEMIDE [Concomitant]
     Route: 048
     Dates: start: 20091216
  8. SYNAGIS [Suspect]

REACTIONS (8)
  - INFLUENZA [None]
  - BRONCHOSPASM [None]
  - PYREXIA [None]
  - COUGH [None]
  - PNEUMONIA [None]
  - INCREASED BRONCHIAL SECRETION [None]
  - WEIGHT INCREASED [None]
  - INFREQUENT BOWEL MOVEMENTS [None]
